FAERS Safety Report 5770796-5 (Version None)
Quarter: 2008Q2

REPORT INFORMATION
  Report Type: 
  Country: None (occurrence: None)
  Receive Date: 20080613
  Receipt Date: 20080513
  Transmission Date: 20081010
  Serious: No
  Sender: FDA-Public Use
  Company Number: US-ABBOTT-08P-163-0451732-00

PATIENT
  Sex: Female
  Weight: 70.37 kg

DRUGS (7)
  1. HUMIRA [Suspect]
     Indication: RHEUMATOID ARTHRITIS
     Dates: start: 20050101, end: 20070101
  2. HUMIRA [Suspect]
     Route: 050
     Dates: start: 20080101
  3. METHOTREXATE [Concomitant]
     Indication: ARTHRITIS
     Dates: start: 20040101
  4. MELOXICAM [Concomitant]
     Indication: ARTHRITIS
     Route: 048
  5. NAPROXEN SODIUM [Concomitant]
     Indication: ARTHRITIS
     Route: 048
     Dates: start: 19930101
  6. ASPIRIN [Concomitant]
     Indication: ANTICOAGULANT THERAPY
     Dates: start: 20050101
  7. PREDNISONE TAB [Concomitant]
     Indication: RHEUMATOID ARTHRITIS
     Dates: end: 20080401

REACTIONS (5)
  - ACCIDENTAL EXPOSURE [None]
  - INJECTION SITE HAEMORRHAGE [None]
  - OEDEMA PERIPHERAL [None]
  - PAIN IN EXTREMITY [None]
  - RHEUMATOID ARTHRITIS [None]
